FAERS Safety Report 10989811 (Version 2)
Quarter: 2018Q3

REPORT INFORMATION
  Report Type: Spontaneous
  Country: JP (occurrence: JP)
  Receive Date: 20150406
  Receipt Date: 20180810
  Transmission Date: 20181010
  Serious: Yes (Other)
  Sender: FDA-Public Use
  Company Number: JP-CIPLA LTD.-2015JP02576

PATIENT

DRUGS (6)
  1. BEVACIZUMAB. [Suspect]
     Active Substance: BEVACIZUMAB
     Indication: MALIGNANT NEOPLASM OF UNKNOWN PRIMARY SITE
     Dosage: 15 MG/KG, FIVE CYCLES
     Route: 065
  2. BEVACIZUMAB. [Suspect]
     Active Substance: BEVACIZUMAB
     Dosage: 15 MG/KG MAINTENANCE CHEMOTHERAPY OF SIX CYCLES
     Route: 065
  3. ERLOTINIB [Suspect]
     Active Substance: ERLOTINIB
     Indication: MALIGNANT NEOPLASM OF UNKNOWN PRIMARY SITE
     Dosage: 150 MG, FIVE CYCLES
     Route: 065
  4. ERLOTINIB [Suspect]
     Active Substance: ERLOTINIB
     Dosage: 150 MG, MAINTENANCE CHEMOTHERAPY OF SIX CYCLES
     Route: 065
  5. CARBOPLATIN. [Suspect]
     Active Substance: CARBOPLATIN
     Indication: MALIGNANT NEOPLASM OF UNKNOWN PRIMARY SITE
     Dosage: UNK, AUC 6, FIVE CYCLES
     Route: 065
  6. PACLITAXEL. [Suspect]
     Active Substance: PACLITAXEL
     Indication: MALIGNANT NEOPLASM OF UNKNOWN PRIMARY SITE
     Dosage: 175 MG/M^2, FIVE CYCLES
     Route: 065

REACTIONS (7)
  - Alanine aminotransferase increased [Unknown]
  - Stomatitis [Unknown]
  - Facial paralysis [Unknown]
  - Malignant neoplasm progression [Unknown]
  - Neuropathy peripheral [Recovering/Resolving]
  - Dysgeusia [Unknown]
  - Rash [Unknown]
